FAERS Safety Report 18866465 (Version 2)
Quarter: 2021Q1

REPORT INFORMATION
  Report Type: Report from Study
  Country: BR (occurrence: BR)
  Receive Date: 20210209
  Receipt Date: 20210312
  Transmission Date: 20210420
  Serious: Yes (Hospitalization, Other)
  Sender: FDA-Public Use
  Company Number: NVSC2020BR338831

PATIENT
  Age: 70 Year
  Sex: Female
  Weight: 50.35 kg

DRUGS (3)
  1. DIPYRONE [Concomitant]
     Active Substance: DIPYRONE
     Indication: PAIN
     Dosage: UNK, Q6H
     Route: 048
     Dates: start: 202010
  2. KISQALI [Suspect]
     Active Substance: RIBOCICLIB
     Indication: BREAST CANCER METASTATIC
  3. KISQALI [Suspect]
     Active Substance: RIBOCICLIB
     Indication: BREAST CANCER
     Dosage: 600 MG, QD (D1 ? D21 (21 DAYS OF USE), 7?DAY INTERVAL (28?DAY CYCLE)) (3 TABLETS)
     Route: 048
     Dates: start: 20201016, end: 20201216

REACTIONS (6)
  - Constipation [Recovered/Resolved]
  - Constipation [Recovered/Resolved]
  - Intestinal dilatation [Unknown]
  - Constipation [Recovered/Resolved]
  - Constipation [Recovered/Resolved]
  - Faecaloma [Unknown]

NARRATIVE: CASE EVENT DATE: 202010
